FAERS Safety Report 7936586-X (Version None)
Quarter: 2011Q4

REPORT INFORMATION
  Report Type: 
  Country: None (occurrence: None)
  Receive Date: 20111123
  Receipt Date: 20110902
  Transmission Date: 20120403
  Serious: No
  Sender: FDA-Public Use
  Company Number: US-BAYER-2011-088131

PATIENT
  Sex: Female

DRUGS (3)
  1. ALEVE (CAPLET) [Suspect]
     Indication: ABDOMINAL PAIN
  2. ALEVE (CAPLET) [Suspect]
     Indication: HEADACHE
  3. ALEVE (CAPLET) [Suspect]
     Indication: BACK PAIN

REACTIONS (3)
  - BACK PAIN [None]
  - HEADACHE [None]
  - ABDOMINAL PAIN [None]
